FAERS Safety Report 6441684 (Version 7)
Quarter: 2018Q3

REPORT INFORMATION
  Report Type: Spontaneous
  Country: GB (occurrence: GB)
  Receive Date: 20071001
  Receipt Date: 20180816
  Transmission Date: 20181010
  Serious: Yes (Hospitalization, Other)
  Sender: FDA-Public Use
  Company Number: GXKR2007GB08138

PATIENT
  Age: 42 Year
  Sex: Male

DRUGS (5)
  1. COLOMYCIN (COLISTIN) [Interacting]
     Active Substance: COLISTIN SULFATE
     Indication: PSEUDOMONAS INFECTION
     Dosage: 2 MIU, TID
     Route: 042
     Dates: start: 200306
  2. DICLOFENAC [Suspect]
     Active Substance: DICLOFENAC
     Indication: NON-CARDIAC CHEST PAIN
     Dosage: UNK
     Route: 065
     Dates: start: 200306
  3. TOBRAMYCIN. [Interacting]
     Active Substance: TOBRAMYCIN
     Indication: PSEUDOMONAS INFECTION
     Dosage: 160 MG, TID
     Route: 042
     Dates: start: 200306
  4. COTRIMOXAZOLE [Interacting]
     Active Substance: SULFAMETHOXAZOLE\TRIMETHOPRIM
     Indication: BURKHOLDERIA CEPACIA COMPLEX INFECTION
     Dosage: 1.44 G, BID
     Route: 042
     Dates: start: 200306
  5. COTRIMOXAZOLE [Interacting]
     Active Substance: SULFAMETHOXAZOLE\TRIMETHOPRIM
     Indication: INFECTION

REACTIONS (8)
  - Drug level changed [None]
  - Dizziness [Unknown]
  - Drug interaction [Unknown]
  - Ataxia [Unknown]
  - Tinnitus [Unknown]
  - Acute kidney injury [Unknown]
  - Creatinine renal clearance decreased [Unknown]
  - Blood creatinine increased [Unknown]

NARRATIVE: CASE EVENT DATE: 2003
